FAERS Safety Report 9506798 (Version 1)
Quarter: 2013Q3

REPORT INFORMATION
  Report Type: Spontaneous
  Country: CH (occurrence: CH)
  Receive Date: 20130909
  Receipt Date: 20130909
  Transmission Date: 20140515
  Serious: Yes (Hospitalization)
  Sender: FDA-Public Use
  Company Number: CH-ROCHE-1270913

PATIENT
  Age: 57 Year
  Sex: Female

DRUGS (5)
  1. PEGASYS [Suspect]
     Indication: CHRONIC HEPATITIS C
     Dosage: FORM: VIALS
     Route: 058
     Dates: start: 20130624
  2. COPEGUS [Suspect]
     Indication: CHRONIC HEPATITIS C
     Route: 048
     Dates: start: 20130624
  3. COPEGUS [Suspect]
     Dosage: DOSE REDUCED
     Route: 048
     Dates: start: 20130805
  4. INCIVO [Suspect]
     Indication: CHRONIC HEPATITIS C
     Route: 048
     Dates: start: 20130624
  5. DAFALGAN [Concomitant]
     Route: 048
     Dates: start: 20130624

REACTIONS (1)
  - Pancytopenia [Recovering/Resolving]
